FAERS Safety Report 8246239-9 (Version None)
Quarter: 2012Q1

REPORT INFORMATION
  Report Type: 
  Country: None (occurrence: None)
  Receive Date: 20120330
  Receipt Date: 20110222
  Transmission Date: 20120608
  Serious: No
  Sender: FDA-Public Use
  Company Number: US-MYLANLABS-2011S1001980

PATIENT
  Age: 15 Year
  Sex: Female

DRUGS (24)
  1. ALBUTEROL SULATE [Suspect]
     Indication: WHEEZING
     Route: 055
     Dates: start: 20101122, end: 20101101
  2. ALBUTEROL SULATE [Suspect]
     Route: 055
     Dates: start: 20110101, end: 20110101
  3. ALBUTEROL SULATE [Suspect]
     Route: 055
     Dates: start: 20110101, end: 20110101
  4. ALBUTEROL SULATE [Suspect]
     Route: 055
     Dates: start: 20110101, end: 20110101
  5. ALBUTEROL SULATE [Suspect]
     Route: 055
     Dates: start: 20101122, end: 20101101
  6. ALBUTEROL SULATE [Suspect]
     Route: 055
     Dates: start: 20110101, end: 20110101
  7. ALBUTEROL SULATE [Suspect]
     Route: 055
     Dates: start: 20101122, end: 20101101
  8. ALBUTEROL SULATE [Suspect]
     Route: 055
     Dates: start: 20110101, end: 20110101
  9. ALBUTEROL SULATE [Suspect]
     Indication: ASTHMA
     Route: 055
     Dates: start: 20101122, end: 20101101
  10. ALBUTEROL SULATE [Suspect]
     Route: 055
     Dates: start: 20110101, end: 20110101
  11. ALBUTEROL SULATE [Suspect]
     Route: 055
     Dates: start: 20101122, end: 20101101
  12. ALBUTEROL SULATE [Suspect]
     Route: 055
     Dates: start: 20110101, end: 20110101
  13. ALBUTEROL SULATE [Suspect]
     Route: 055
     Dates: start: 20101122, end: 20101101
  14. ALBUTEROL SULATE [Suspect]
     Route: 055
     Dates: start: 20101122, end: 20101101
  15. ALBUTEROL SULATE [Suspect]
     Route: 055
     Dates: start: 20110101, end: 20110101
  16. ALBUTEROL SULATE [Suspect]
     Route: 055
     Dates: start: 20110101, end: 20110101
  17. ALBUTEROL SULATE [Suspect]
     Route: 055
     Dates: start: 20110101, end: 20110101
  18. ALBUTEROL SULATE [Suspect]
     Route: 055
     Dates: start: 20101122, end: 20101101
  19. ALBUTEROL SULATE [Suspect]
     Route: 055
     Dates: start: 20101122, end: 20101101
  20. ALBUTEROL SULATE [Suspect]
     Indication: COUGH
     Route: 055
     Dates: start: 20101122, end: 20101101
  21. ALBUTEROL SULATE [Suspect]
     Route: 055
     Dates: start: 20101122, end: 20101101
  22. ALBUTEROL SULATE [Suspect]
     Route: 055
     Dates: start: 20110101, end: 20110101
  23. ALBUTEROL SULATE [Suspect]
     Route: 055
     Dates: start: 20101122, end: 20101101
  24. ALBUTEROL SULATE [Suspect]
     Route: 055
     Dates: start: 20110101, end: 20110101

REACTIONS (3)
  - HYPERSENSITIVITY [None]
  - THROAT IRRITATION [None]
  - OROPHARYNGEAL PAIN [None]
